FAERS Safety Report 19415633 (Version 1)
Quarter: 2021Q2

REPORT INFORMATION
  Report Type: Spontaneous
  Country: US (occurrence: US)
  Receive Date: 20210614
  Receipt Date: 20210614
  Transmission Date: 20210717
  Serious: No
  Sender: FDA-Public Use
  Company Number: None

PATIENT
  Age: 79 Year
  Sex: Female

DRUGS (9)
  1. AMLODIPINE 2.5 MG TAB [Concomitant]
  2. VITAMIN D CAP 1000 UNIT [Concomitant]
  3. ALPRAZOLAM TAB 0.25 MG [Concomitant]
  4. FUROSEMIDE 20 MG TAB [Concomitant]
  5. POT CHLORIDE TAB 10 MEQ ER [Concomitant]
  6. ATENOLOL 25 MG TAB [Concomitant]
  7. LEVOTHYROXINE 100 MCG TAB [Concomitant]
  8. DOFETILIDE. [Suspect]
     Active Substance: DOFETILIDE
     Indication: ATRIAL FIBRILLATION
     Route: 048
  9. ELQIQUIS 5MG TAB [Concomitant]

REACTIONS (2)
  - Therapy interrupted [None]
  - Headache [None]

NARRATIVE: CASE EVENT DATE: 20210614
